FAERS Safety Report 5974103-4 (Version None)
Quarter: 2008Q4

REPORT INFORMATION
  Report Type: 
  Country: None (occurrence: None)
  Receive Date: 20081201
  Receipt Date: 20081120
  Transmission Date: 20090506
  Serious: Yes (Other)
  Sender: FDA-Public Use
  Company Number: US-GENENTECH-272153

PATIENT
  Age: 63 Year
  Sex: Female

DRUGS (4)
  1. HERCEPTIN [Suspect]
     Indication: BREAST CANCER STAGE IV
     Dosage: UNK
  2. ANASTROZOLE [Suspect]
     Indication: BREAST CANCER STAGE IV
     Dosage: UNK
  3. LETROZOLE [Suspect]
     Indication: BREAST CANCER STAGE IV
  4. FULVESTRANT [Suspect]
     Indication: BREAST CANCER STAGE IV

REACTIONS (1)
  - VASCULITIS [None]
